FAERS Safety Report 11077987 (Version 1)
Quarter: 2015Q2

REPORT INFORMATION
  Report Type: Spontaneous
  Country: US (occurrence: None)
  Receive Date: 20150429
  Receipt Date: 20150429
  Transmission Date: 20150821
  Serious: Yes (Other)
  Sender: FDA-Public Use
  Company Number: None

PATIENT
  Age: 80 Year
  Sex: Female
  Weight: 68.95 kg

DRUGS (8)
  1. CELECOXIB 200MG [Suspect]
     Active Substance: CELECOXIB
     Indication: MYALGIA
     Route: 048
     Dates: start: 20150309, end: 20150309
  2. BYSTOLIC [Concomitant]
     Active Substance: NEBIVOLOL HYDROCHLORIDE
  3. HCTZ [Concomitant]
     Active Substance: HYDROCHLOROTHIAZIDE
  4. RED YEAST RICE [Concomitant]
     Active Substance: DIETARY SUPPLEMENT
  5. ASPIRIN. [Concomitant]
     Active Substance: ASPIRIN
  6. CELECOXIB 200MG [Suspect]
     Active Substance: CELECOXIB
     Indication: BONE PAIN
     Route: 048
     Dates: start: 20150309, end: 20150309
  7. FLAXSEED [Concomitant]
     Active Substance: FLAX SEED
  8. NEXIUM [Concomitant]
     Active Substance: ESOMEPRAZOLE MAGNESIUM

REACTIONS (3)
  - Drug ineffective [None]
  - Product quality issue [None]
  - Pain [None]

NARRATIVE: CASE EVENT DATE: 20150330
